FAERS Safety Report 4697799-6 (Version None)
Quarter: 2005Q2

REPORT INFORMATION
  Report Type: 
  Country: None (occurrence: None)
  Receive Date: 20050623
  Receipt Date: 20050613
  Transmission Date: 20051028
  Serious: Yes (Hospitalization)
  Sender: FDA-Public Use
  Company Number: US-JNJFOC-20050603708

PATIENT
  Sex: Male
  Weight: 77.11 kg

DRUGS (15)
  1. REMICADE [Suspect]
     Indication: RHEUMATOID ARTHRITIS
     Route: 042
  2. METHOTREXATE SODIUM [Concomitant]
  3. PLAQUENIL [Concomitant]
  4. PLENDIL [Concomitant]
  5. DYAZIDE [Concomitant]
  6. DYAZIDE [Concomitant]
  7. SULINDAC [Concomitant]
  8. FOLATE [Concomitant]
  9. LIPITOR [Concomitant]
  10. ACETYLSALICYLIC ACID SRT [Concomitant]
  11. LEVOXIL [Concomitant]
  12. CALCITRIOL [Concomitant]
  13. CALCITRIOL [Concomitant]
  14. CALCITRIOL [Concomitant]
  15. POTASSIUM CHLORIDE [Concomitant]

REACTIONS (2)
  - NON-HODGKIN'S LYMPHOMA [None]
  - PYREXIA [None]
